FAERS Safety Report 13575501 (Version 1)
Quarter: 2017Q2

REPORT INFORMATION
  Report Type: Spontaneous
  Country: US (occurrence: US)
  Receive Date: 20170523
  Receipt Date: 20170523
  Transmission Date: 20170830
  Serious: No
  Sender: FDA-Public Use
  Company Number: None

PATIENT
  Age: 39 Year
  Sex: Female

DRUGS (2)
  1. HUMIRA [Suspect]
     Active Substance: ADALIMUMAB
     Indication: RHEUMATOID ARTHRITIS
     Route: 058
     Dates: start: 20161101
  2. METHOTREXATE 2.5 MG [Suspect]
     Active Substance: METHOTREXATE
     Route: 048
     Dates: start: 20161101

REACTIONS (3)
  - Acne [None]
  - Hypersensitivity [None]
  - Skin discolouration [None]

NARRATIVE: CASE EVENT DATE: 20170522
